FAERS Safety Report 21359600 (Version 1)
Quarter: 2022Q3

REPORT INFORMATION
  Report Type: Spontaneous
  Country: DE (occurrence: DE)
  Receive Date: 20220921
  Receipt Date: 20220921
  Transmission Date: 20221027
  Serious: Yes (Hospitalization)
  Sender: FDA-Public Use
  Company Number: None

PATIENT
  Age: 71 Year
  Sex: Female
  Weight: 50 kg

DRUGS (8)
  1. RITUXIMAB [Suspect]
     Active Substance: RITUXIMAB
     Dosage: 1ST CYCLE ON 18JAN2021
  2. BENDAMUSTINE [Suspect]
     Active Substance: BENDAMUSTINE
     Dosage: 1ST CYCLE ON 18JAN2021
  3. SULFAMETHOXAZOLE AND TRIMETHOPRIM [Concomitant]
     Active Substance: SULFAMETHOXAZOLE\TRIMETHOPRIM
     Dosage: 800|160 MG, 1-0-0-0 (MO,TU,FR)
  4. CETIRIZINE HYDROCHLORIDE [Concomitant]
     Active Substance: CETIRIZINE HYDROCHLORIDE
     Dosage: 10 MG, 1-0-1-0
  5. PANTOPRAZOLE [Concomitant]
     Active Substance: PANTOPRAZOLE
     Dosage: 20 MG, 1-0-0-0
  6. ENTECAVIR [Concomitant]
     Active Substance: ENTECAVIR
     Dosage: 0.5 MG, 0-0-1-0
  7. LOCACORTEN-VIOFORM [Concomitant]
     Dosage: UNK
     Route: 061
  8. CALCIUM CARBONATE\CHOLECALCIFEROL [Concomitant]
     Active Substance: CALCIUM CARBONATE\CHOLECALCIFEROL
     Dosage: 500/400 MG/IE, 1-0-0-0

REACTIONS (3)
  - Malaise [Unknown]
  - Pyrexia [Unknown]
  - Gamma-glutamyltransferase increased [Unknown]

NARRATIVE: CASE EVENT DATE: 20210128
